FAERS Safety Report 20891383 (Version 1)
Quarter: 2022Q2

REPORT INFORMATION
  Report Type: Spontaneous
  Country: US (occurrence: US)
  Receive Date: 20220530
  Receipt Date: 20220530
  Transmission Date: 20220721
  Serious: Yes (Hospitalization, Other)
  Sender: FDA-Public Use
  Company Number: US-CELGENE-USA-20220302483

PATIENT
  Age: 73 Year
  Sex: Female
  Weight: 94.35 kg

DRUGS (1)
  1. REVLIMID [Suspect]
     Active Substance: LENALIDOMIDE
     Indication: Plasma cell myeloma
     Dosage: 10 MILLIGRAM DAILY X 14 DAYS ON AND 7 DAYS OFF
     Route: 048
     Dates: start: 20211027

REACTIONS (5)
  - Diverticulitis [Unknown]
  - Ageusia [Not Recovered/Not Resolved]
  - Peripheral swelling [Unknown]
  - Abdominal pain [Unknown]
  - Off label use [Unknown]
